FAERS Safety Report 7619288-9 (Version None)
Quarter: 2011Q3

REPORT INFORMATION
  Report Type: 
  Country: None (occurrence: None)
  Receive Date: 20110718
  Receipt Date: 20110711
  Transmission Date: 20111222
  Serious: No
  Sender: FDA-Public Use
  Company Number: US-B.I. PHARMACEUTICALS,INC./RIDGEFIELD-2011-BP-06267BP

PATIENT
  Age: 76 Year
  Sex: Female

DRUGS (3)
  1. METOPROLOL TARTRATE [Concomitant]
     Indication: ATRIAL FIBRILLATION
  2. METOPROLOL TARTRATE [Concomitant]
     Indication: TACHYCARDIA
     Dosage: 25 MG
     Dates: start: 20040101
  3. PRADAXA [Suspect]
     Indication: ATRIAL FIBRILLATION
     Dosage: 300 MG
     Route: 048
     Dates: start: 20110225

REACTIONS (2)
  - EYE HAEMORRHAGE [None]
  - OCULAR HYPERAEMIA [None]
